FAERS Safety Report 8609617-1 (Version None)
Quarter: 2012Q3

REPORT INFORMATION
  Report Type: 
  Country: None (occurrence: None)
  Receive Date: 20120821
  Receipt Date: 20120807
  Transmission Date: 20120928
  Serious: Yes (Hospitalization, Other)
  Sender: FDA-Public Use
  Company Number: GB-WATSON-2010-06329

PATIENT
  Age: 40 Year
  Sex: Male

DRUGS (9)
  1. ABILIFY [Suspect]
     Indication: BIPOLAR DISORDER
     Dosage: 15 MG, DAILY
     Route: 048
     Dates: start: 20080401
  2. RISPERIDONE [Suspect]
     Indication: MANIA
     Dosage: 4 MG, DAILY
     Dates: start: 20080301
  3. ABILIFY [Suspect]
     Indication: METABOLIC SYNDROME
  4. LITHIUM CARBONATE [Concomitant]
     Indication: BIPOLAR DISORDER
  5. QUETIAPINE [Suspect]
     Indication: MOOD SWINGS
     Dosage: UNK
     Route: 065
  6. DULOXETINE HYDROCHLORIDE [Suspect]
     Indication: BIPOLAR DISORDER
     Dosage: 60 MG, UNK
  7. VALPROATE SODIUM [Suspect]
     Indication: PRODUCT USED FOR UNKNOWN INDICATION
     Dosage: 600 MG, UNKNOWN
     Route: 065
  8. MIRTAZAPINE [Suspect]
     Indication: DEPRESSIVE SYMPTOM
     Dosage: UNK
  9. MIRTAZAPINE [Suspect]
     Indication: EXTRAPYRAMIDAL DISORDER

REACTIONS (5)
  - DEPRESSIVE SYMPTOM [None]
  - EXTRAPYRAMIDAL DISORDER [None]
  - HYPOTHYROIDISM [None]
  - LIVER FUNCTION TEST ABNORMAL [None]
  - METABOLIC SYNDROME [None]
